FAERS Safety Report 23759688 (Version 1)
Quarter: 2024Q2

REPORT INFORMATION
  Report Type: Other
  Country: DE (occurrence: None)
  Receive Date: 20240419
  Receipt Date: 20240419
  Transmission Date: 20240715
  Serious: Yes (Other)
  Sender: FDA-Public Use
  Company Number: DE-AMGEN-DEUSP2024065216

PATIENT
  Sex: Female

DRUGS (3)
  1. BEVACIZUMAB [Suspect]
     Active Substance: BEVACIZUMAB
     Indication: Cervix carcinoma
     Dosage: UNK
     Route: 065
  2. PACLITAXEL [Concomitant]
     Active Substance: PACLITAXEL
     Indication: Cervix carcinoma
  3. CISPLATIN [Concomitant]
     Active Substance: CISPLATIN
     Indication: Cervix carcinoma

REACTIONS (1)
  - Disease progression [Recovering/Resolving]
